FAERS Safety Report 10860731 (Version 1)
Quarter: 2015Q1

REPORT INFORMATION
  Report Type: Report from Study
  Country: ZA (occurrence: ZA)
  Receive Date: 20150224
  Receipt Date: 20150224
  Transmission Date: 20150721
  Serious: Yes (Hospitalization)
  Sender: FDA-Public Use
  Company Number: PHHY2015ZA020800

PATIENT
  Age: 76 Year
  Sex: Male

DRUGS (1)
  1. TAREG [Suspect]
     Active Substance: VALSARTAN
     Indication: HYPERTENSION
     Dosage: 1 DF (160MG) QD
     Route: 048
     Dates: start: 2010, end: 201412

REACTIONS (2)
  - Nausea [Recovering/Resolving]
  - Colon cancer [Recovering/Resolving]

NARRATIVE: CASE EVENT DATE: 201411
